FAERS Safety Report 9789675 (Version 2)
Quarter: 2014Q1

REPORT INFORMATION
  Report Type: Spontaneous
  Country: US (occurrence: US)
  Receive Date: 20131231
  Receipt Date: 20140319
  Transmission Date: 20141002
  Serious: No
  Sender: FDA-Public Use
  Company Number: US-B.I. PHARMACEUTICALS,INC./RIDGEFIELD-2013-BI-42954BP

PATIENT
  Age: 52 Year
  Sex: Female
  Weight: 61 kg

DRUGS (6)
  1. SPIRIVA [Suspect]
     Indication: CHRONIC OBSTRUCTIVE PULMONARY DISEASE
     Dosage: 18 MCG
     Route: 055
     Dates: start: 2011
  2. DILANTIN [Concomitant]
     Indication: CONVULSION
     Route: 048
  3. PROAIR [Concomitant]
     Indication: ASTHMA
     Dosage: (INHALATION SPRAY)
     Route: 055
  4. PAXIL [Concomitant]
     Indication: ANXIETY
     Route: 048
  5. LANTUS [Concomitant]
     Indication: DIABETES MELLITUS
     Dosage: 20 U
     Route: 058
  6. HUMALOG [Concomitant]
     Indication: DIABETES MELLITUS
     Dosage: (SUBCUTANEOUS) STRENGTH: 10 UNITS;
     Route: 058

REACTIONS (5)
  - Throat irritation [Not Recovered/Not Resolved]
  - Somnolence [Not Recovered/Not Resolved]
  - Rhinorrhoea [Not Recovered/Not Resolved]
  - Pruritus [Not Recovered/Not Resolved]
  - Pruritus [Not Recovered/Not Resolved]
